FAERS Safety Report 4826278-8 (Version None)
Quarter: 2005Q4

REPORT INFORMATION
  Report Type: 
  Country: None (occurrence: None)
  Receive Date: 20051111
  Receipt Date: 20051108
  Transmission Date: 20060501
  Serious: Yes (Death)
  Sender: FDA-Public Use
  Company Number: HU-BRISTOL-MYERS SQUIBB COMPANY-13173190

PATIENT
  Age: 57 Year
  Sex: Male

DRUGS (3)
  1. CETUXIMAB [Suspect]
     Indication: SQUAMOUS CELL CARCINOMA
     Dosage: REC'D 5 INFUSIONS.
     Route: 041
     Dates: start: 20050704, end: 20050815
  2. CISPLATIN [Suspect]
     Indication: SQUAMOUS CELL CARCINOMA
     Route: 042
     Dates: start: 20050704
  3. FLUOROURACIL [Suspect]
     Indication: SQUAMOUS CELL CARCINOMA
     Dosage: REC'D 3 DOSES.
     Route: 042
     Dates: start: 20050704

REACTIONS (5)
  - ASTHENIA [None]
  - AZOTAEMIA [None]
  - CACHEXIA [None]
  - PNEUMONIA [None]
  - VOMITING [None]
